FAERS Safety Report 11448495 (Version 4)
Quarter: 2016Q2

REPORT INFORMATION
  Report Type: Report from Study
  Country: US (occurrence: US)
  Receive Date: 20150902
  Receipt Date: 20160502
  Transmission Date: 20160815
  Serious: Yes (Other)
  Sender: FDA-Public Use
  Company Number: US-MDT-ADR-2015-01679

PATIENT
  Age: 64 Year
  Sex: Female

DRUGS (7)
  1. MORPHINE [Suspect]
     Active Substance: MORPHINE
     Dosage: 5.992MG/DAY
     Route: 037
  2. FENTANYL. [Suspect]
     Active Substance: FENTANYL
     Dosage: 149.8MCG/DAY
     Route: 037
  3. BACLOFEN. [Suspect]
     Active Substance: BACLOFEN
     Dosage: 14.98MCG/DAY
     Route: 037
  4. NORCO [Suspect]
     Active Substance: ACETAMINOPHEN\HYDROCODONE BITARTRATE
  5. SONATA [Suspect]
     Active Substance: ZALEPLON
  6. BUPIVACAINE. [Suspect]
     Active Substance: BUPIVACAINE
     Dosage: 0.749MG/DAY
     Route: 037
  7. PRILOSEC [Suspect]
     Active Substance: OMEPRAZOLE MAGNESIUM

REACTIONS (5)
  - Implant site extravasation [Recovered/Resolved]
  - Implant site extravasation [Recovered/Resolved]
  - Medical device site pain [Recovered/Resolved]
  - Fluctuance [Recovered/Resolved]
  - Medical device site infection [Recovered/Resolved]

NARRATIVE: CASE EVENT DATE: 20150811
